FAERS Safety Report 7094025-8 (Version None)
Quarter: 2010Q4

REPORT INFORMATION
  Report Type: 
  Country: None (occurrence: None)
  Receive Date: 20101101
  Receipt Date: 20081014
  Transmission Date: 20110411
  Serious: Yes (Hospitalization)
  Sender: FDA-Public Use
  Company Number: 2008PV000067

PATIENT
  Age: 34 Year
  Sex: Female
  Weight: 65.5 kg

DRUGS (10)
  1. CYTARABINE [Suspect]
     Indication: METASTASES TO MENINGES
  2. NOXAFIL [Suspect]
     Indication: HEPATOSPLENIC CANDIDIASIS
     Dosage: 40 MG; PO
     Route: 048
     Dates: start: 20071019, end: 20080125
  3. PANTOPRAZOLE SODIUM [Suspect]
  4. VOGALENE (METOPIMAZINE) [Suspect]
  5. ONDANSETRON [Suspect]
  6. KALEROID (POTASSIUM CHLORIDE) [Suspect]
     Dosage: 750 MG; PO
     Route: 048
  7. DEXAMETHASONE [Suspect]
  8. ACICLODAN (ACICLOVIR) [Suspect]
  9. ALLOPURINOL [Suspect]
     Dosage: ; PO
     Route: 048
  10. ETOPOSIDE [Suspect]

REACTIONS (1)
  - SINOATRIAL BLOCK [None]
